FAERS Safety Report 12678180 (Version 1)
Quarter: 2016Q3

REPORT INFORMATION
  Report Type: Spontaneous
  Country: US (occurrence: US)
  Receive Date: 20160823
  Receipt Date: 20160823
  Transmission Date: 20161109
  Serious: Yes (Hospitalization, Other)
  Sender: FDA-Public Use
  Company Number: US-PFIZER INC-2016398535

PATIENT
  Age: 63 Year
  Sex: Female

DRUGS (4)
  1. ORENCIA [Suspect]
     Active Substance: ABATACEPT
     Dosage: UNK
     Route: 065
  2. PREDNISONE. [Suspect]
     Active Substance: PREDNISONE
     Dosage: UNK
     Route: 065
  3. ENBREL [Suspect]
     Active Substance: ETANERCEPT
     Indication: RHEUMATOID ARTHRITIS
     Dosage: UNK
     Route: 065
     Dates: start: 2006
  4. XELJANZ [Suspect]
     Active Substance: TOFACITINIB CITRATE
     Dosage: UNK
     Route: 065

REACTIONS (14)
  - Sepsis [Unknown]
  - Eye infection fungal [Unknown]
  - Eye disorder [Unknown]
  - Rash [Unknown]
  - Cataract [Unknown]
  - Nephrolithiasis [Unknown]
  - Spinal cord infection [Unknown]
  - Exercise tolerance decreased [Not Recovered/Not Resolved]
  - Meniscus injury [Unknown]
  - Candida infection [Unknown]
  - Rheumatoid arthritis [Unknown]
  - Oral mucosal blistering [Unknown]
  - Drug ineffective [Unknown]
  - Weight increased [Unknown]

NARRATIVE: CASE EVENT DATE: 201508
